FAERS Safety Report 20739551 (Version 1)
Quarter: 2022Q2

REPORT INFORMATION
  Report Type: Spontaneous
  Country: BR (occurrence: BR)
  Receive Date: 20220422
  Receipt Date: 20220422
  Transmission Date: 20220721
  Serious: Yes (Other)
  Sender: FDA-Public Use
  Company Number: BR-PFIZER INC-202200564863

PATIENT
  Age: 68 Year
  Sex: Female

DRUGS (2)
  1. ENBREL [Suspect]
     Active Substance: ETANERCEPT
     Indication: Product used for unknown indication
     Dosage: (TAKES ONE BOX PER MONTH) 4 INJECTIONS
     Route: 065
     Dates: start: 2005
  2. METHOTREXATE [Concomitant]
     Active Substance: METHOTREXATE
     Dosage: UNK

REACTIONS (9)
  - Rheumatoid arthritis [Unknown]
  - Facial paralysis [Unknown]
  - Deafness unilateral [Unknown]
  - Pain [Unknown]
  - Herpes zoster [Unknown]
  - Product packaging issue [Unknown]
  - Circumstance or information capable of leading to device use error [Unknown]
  - COVID-19 [Unknown]
  - Headache [Unknown]
